FAERS Safety Report 8460984 (Version 3)
Quarter: 2013Q3

REPORT INFORMATION
  Report Type: Spontaneous
  Country: US (occurrence: US)
  Receive Date: 20120315
  Receipt Date: 20130819
  Transmission Date: 20140515
  Serious: No
  Sender: FDA-Public Use
  Company Number: US-PFIZER INC-2012065266

PATIENT
  Age: 73 Year
  Sex: Female
  Weight: 68.93 kg

DRUGS (4)
  1. ADVIL COLD AND SINUS [Suspect]
     Indication: NASOPHARYNGITIS
     Dosage: 200 MG/30 MG, TWO TIMES A DAY
     Route: 048
     Dates: start: 201203, end: 20120311
  2. ADVIL COLD AND SINUS [Suspect]
     Indication: SINUS DISORDER
  3. ADVIL COLD AND SINUS [Suspect]
     Indication: RHINORRHOEA
  4. ADVIL COLD AND SINUS [Suspect]
     Indication: SNEEZING

REACTIONS (1)
  - Drug ineffective [Unknown]
